FAERS Safety Report 7901726-5 (Version None)
Quarter: 2011Q4

REPORT INFORMATION
  Report Type: 
  Country: None (occurrence: None)
  Receive Date: 20111108
  Receipt Date: 20111102
  Transmission Date: 20120403
  Serious: Yes (Other)
  Sender: FDA-Public Use
  Company Number: CHPA2011US15320

PATIENT

DRUGS (3)
  1. DAYQUIL ^PROCTER + GAMBLE^ [Suspect]
     Dosage: UNK, UNK
  2. ROBITUSSIN ^WYETH^ [Suspect]
     Dosage: UNK, UNK
  3. EXCEDRIN (MIGRAINE) [Suspect]
     Dosage: UNK, UNK
     Route: 048

REACTIONS (1)
  - HALLUCINATION, VISUAL [None]
